FAERS Safety Report 6864836-X (Version None)
Quarter: 2010Q3

REPORT INFORMATION
  Report Type: 
  Country: None (occurrence: None)
  Receive Date: 20100721
  Receipt Date: 20080406
  Transmission Date: 20110219
  Serious: No
  Sender: FDA-Public Use
  Company Number: US-PFIZER INC-2008030317

PATIENT
  Sex: Female
  Weight: 76.2 kg

DRUGS (17)
  1. CHANTIX [Suspect]
     Indication: SMOKING CESSATION THERAPY
     Dates: start: 20080315
  2. VITAMIN D [Concomitant]
  3. NASONEX [Concomitant]
     Indication: NASAL CONGESTION
  4. SIMVASTATIN [Concomitant]
     Indication: BLOOD CHOLESTEROL INCREASED
  5. CLONAZEPAM [Concomitant]
  6. PREMARIN [Concomitant]
  7. AMLODIPINE [Concomitant]
  8. FLORINEF [Concomitant]
     Indication: HYPERTENSION
  9. PAXIL CR [Concomitant]
  10. POTASSIUM PHOSPHATES [Concomitant]
  11. PRILOSEC [Concomitant]
  12. MAGNESIUM OXIDE [Concomitant]
  13. MULTI-VITAMINS [Concomitant]
  14. VITAMIN B-12 [Concomitant]
  15. HUMALOG [Concomitant]
  16. LANTUS [Concomitant]
  17. METFORMIN [Concomitant]
     Indication: DIABETES MELLITUS

REACTIONS (2)
  - ABNORMAL DREAMS [None]
  - MIDDLE INSOMNIA [None]
